FAERS Safety Report 25888166 (Version 1)
Quarter: 2025Q4

REPORT INFORMATION
  Report Type: Spontaneous
  Country: EU (occurrence: EU)
  Receive Date: 20251007
  Receipt Date: 20251007
  Transmission Date: 20260117
  Serious: Yes (Life-Threatening, Hospitalization)
  Sender: CHEPLAPHARM
  Company Number: None

PATIENT
  Age: 39 Year
  Sex: Male

DRUGS (7)
  1. QUETIAPINE [Suspect]
     Active Substance: QUETIAPINE
     Dates: start: 20250906
  2. METHADONE HYDROCHLORIDE [Suspect]
     Active Substance: METHADONE HYDROCHLORIDE
     Dosage: PUBLIC ASSISTANCE - PARIS HOSPITALS  40 MG/15 ML, SYRUP IN SINGLE-DOSE CONTAINER
     Dates: start: 20250906
  3. COCAINE [Suspect]
     Active Substance: COCAINE
     Dates: start: 20250906
  4. DEPAKOTE [Suspect]
     Active Substance: DIVALPROEX SODIUM
     Dosage: MORNING AND EVENING?DAILY DOSE: 1000 MILLIGRAM
  5. VALIUM [Suspect]
     Active Substance: DIAZEPAM
  6. VITAMIN B COMPLEX [Suspect]
     Active Substance: CYANOCOBALAMIN\DEXPANTHENOL\NIACINAMIDE\PYRIDOXINE HYDROCHLORIDE\RIBOFLAVIN 5^-PHOSPHATE SODIUM\THIA
     Dosage: MORNING AND EVENING
  7. NALOXONE BASE [Concomitant]
     Route: 045
     Dates: start: 20250906

REACTIONS (5)
  - Poisoning deliberate [Unknown]
  - Substance abuser [Unknown]
  - Coma [Recovered/Resolved]
  - Bundle branch block right [Unknown]
  - Aggression [Unknown]

NARRATIVE: CASE EVENT DATE: 20250906
